FAERS Safety Report 11138160 (Version 2)
Quarter: 2015Q3

REPORT INFORMATION
  Report Type: Spontaneous
  Country: JP (occurrence: JP)
  Receive Date: 20150526
  Receipt Date: 20150702
  Transmission Date: 20151125
  Serious: Yes (Other)
  Sender: FDA-Public Use
  Company Number: PHJP2015JP008071

PATIENT
  Sex: Female

DRUGS (2)
  1. TEGRETOL [Suspect]
     Active Substance: CARBAMAZEPINE
     Indication: TRIGEMINAL NEURALGIA
     Dosage: 600 MG, UNK
     Route: 048
     Dates: start: 201405, end: 20140522
  2. TEGRETOL [Suspect]
     Active Substance: CARBAMAZEPINE
     Dosage: 900 MG, UNK
     Route: 048
     Dates: start: 20140523, end: 20140526

REACTIONS (3)
  - White blood cell count decreased [Recovered/Resolved]
  - Disseminated intravascular coagulation [Recovered/Resolved]
  - Bone marrow failure [Recovered/Resolved]
